FAERS Safety Report 10169853 (Version 2)
Quarter: 2014Q2

REPORT INFORMATION
  Report Type: Spontaneous
  Country: US (occurrence: US)
  Receive Date: 20140513
  Receipt Date: 20140513
  Transmission Date: 20141212
  Serious: Yes (Other)
  Sender: FDA-Public Use
  Company Number: US-PFIZER INC-2013304707

PATIENT
  Age: 70 Year
  Sex: Female
  Weight: 79.82 kg

DRUGS (3)
  1. CELEBREX [Suspect]
     Indication: ARTHRITIS
     Dosage: 200 MG, 2X/DAY
     Route: 048
     Dates: start: 1998
  2. CELEBREX [Suspect]
     Dosage: UNK
     Dates: start: 2012
  3. NAMENDA [Concomitant]
     Dosage: 10 MG, DAILY

REACTIONS (6)
  - Parkinson^s disease [Unknown]
  - Neoplasm malignant [Unknown]
  - Arthritis [Unknown]
  - Asthma [Unknown]
  - Chronic obstructive pulmonary disease [Unknown]
  - Gait disturbance [Unknown]
